FAERS Safety Report 19085630 (Version 2)
Quarter: 2021Q2

REPORT INFORMATION
  Report Type: Spontaneous
  Country: US (occurrence: US)
  Receive Date: 20210402
  Receipt Date: 20210409
  Transmission Date: 20210717
  Serious: Yes (Hospitalization)
  Sender: FDA-Public Use
  Company Number: US-AUROBINDO-AUR-APL-2021-012659

PATIENT
  Age: 57 Year
  Sex: Female

DRUGS (4)
  1. LENVIMA [Concomitant]
     Active Substance: LENVATINIB
     Indication: ENDOMETRIAL CANCER
     Dosage: 20 MILLIGRAM, DAILY
     Route: 048
     Dates: start: 20200730, end: 202011
  2. KEYTRUDA [Concomitant]
     Active Substance: PEMBROLIZUMAB
     Indication: ENDOMETRIAL CANCER
     Dosage: UNK, EVERY 3 WEEKS
     Route: 042
  3. HYDROCHLOROTHIAZIDE. [Suspect]
     Active Substance: HYDROCHLOROTHIAZIDE
     Indication: DIURETIC THERAPY
     Dosage: UNK
     Route: 065
  4. LENVIMA [Concomitant]
     Active Substance: LENVATINIB
     Dosage: 10 MILLIGRAM
     Route: 048
     Dates: start: 202011

REACTIONS (2)
  - Asthenia [Recovering/Resolving]
  - Electrolyte depletion [Recovering/Resolving]

NARRATIVE: CASE EVENT DATE: 202103
